FAERS Safety Report 16845832 (Version 1)
Quarter: 2019Q3

REPORT INFORMATION
  Report Type: Spontaneous
  Country: US (occurrence: US)
  Receive Date: 20190924
  Receipt Date: 20190924
  Transmission Date: 20191005
  Serious: No
  Sender: FDA-Public Use
  Company Number: US-CATALYST PHARMACEUTICALS, INC-2019CAT00360

PATIENT
  Age: 64 Year
  Sex: Female
  Weight: 56.69 kg

DRUGS (2)
  1. FIRDAPSE [Suspect]
     Active Substance: AMIFAMPRIDINE
     Indication: MYASTHENIA GRAVIS
     Dosage: 20 MG, 3X/DAY
     Route: 048
     Dates: start: 20190813
  2. ENALAPRIL [Concomitant]
     Active Substance: ENALAPRIL
     Indication: BLOOD PRESSURE ABNORMAL
     Dosage: UNK, 1X/DAY

REACTIONS (4)
  - Abdominal pain upper [Recovered/Resolved]
  - Presyncope [Recovered/Resolved]
  - Off label use [Not Recovered/Not Resolved]
  - Vision blurred [Recovered/Resolved]

NARRATIVE: CASE EVENT DATE: 20190817
